FAERS Safety Report 5406706-X (Version None)
Quarter: 2007Q3

REPORT INFORMATION
  Report Type: 
  Country: None (occurrence: None)
  Receive Date: 20070803
  Receipt Date: 20070803
  Transmission Date: 20080115
  Serious: Yes (Hospitalization, Other)
  Sender: FDA-Public Use
  Company Number: None

PATIENT
  Sex: Male
  Weight: 4.87 kg

DRUGS (3)
  1. ERYTHROMYCIN [Suspect]
     Indication: CHLAMYDIAL INFECTION
     Dosage: 50 MG Q6HR PO
     Route: 048
     Dates: start: 20070702, end: 20070717
  2. ERYTHROMYCIN [Suspect]
     Indication: CONJUNCTIVITIS
     Dosage: 63 ML = 52 MG Q6HR PO
     Route: 048
  3. CEFOTAXIME SODIUM [Concomitant]

REACTIONS (4)
  - CHLAMYDIAL INFECTION [None]
  - PYLORIC STENOSIS [None]
  - SEPSIS [None]
  - VOMITING [None]
